FAERS Safety Report 16335231 (Version 1)
Quarter: 2019Q2

REPORT INFORMATION
  Report Type: Report from Study
  Country: BR (occurrence: BR)
  Receive Date: 20190521
  Receipt Date: 20190521
  Transmission Date: 20190711
  Serious: Yes (Other)
  Sender: FDA-Public Use
  Company Number: BR-UCBSA-2018003243

PATIENT
  Age: 63 Year
  Sex: Male
  Weight: 86 kg

DRUGS (11)
  1. SIFROL [Concomitant]
     Active Substance: PRAMIPEXOLE
     Indication: PRODUCT USED FOR UNKNOWN INDICATION
     Dosage: UNK
  2. ROTIGOTINE [Suspect]
     Active Substance: ROTIGOTINE
     Dosage: 4 MILLIGRAM, ONCE DAILY (QD) (ONE DAY 2 PATCHES OF 2 MG AND ON THE NEXT DAY USES 1 PATCH OF 4 MG)
     Route: 062
     Dates: start: 201701
  3. PROLOPA HBS [Concomitant]
     Active Substance: BENSERAZIDE\LEVODOPA
     Indication: PRODUCT USED FOR UNKNOWN INDICATION
     Dosage: UNK UNK, ONCE DAILY (QD)
     Route: 048
     Dates: start: 201309
  4. AKINETON [Concomitant]
     Active Substance: BIPERIDEN HYDROCHLORIDE
     Indication: PRODUCT USED FOR UNKNOWN INDICATION
     Dosage: 2 MILLIGRAM, 3X/DAY (TID)
     Route: 048
     Dates: start: 2014
  5. ROTIGOTINE [Suspect]
     Active Substance: ROTIGOTINE
     Indication: PARKINSON^S DISEASE
     Dosage: 8 MILLIGRAM, ONCE DAILY (QD)
     Route: 062
     Dates: start: 201501, end: 201504
  6. ROTIGOTINE [Suspect]
     Active Substance: ROTIGOTINE
     Dosage: 6 MILLIGRAM, ONCE DAILY (QD)
     Route: 062
     Dates: start: 201501, end: 201801
  7. RIVOTRIL [Concomitant]
     Active Substance: CLONAZEPAM
     Indication: SLEEP DISORDER
     Dosage: 1.5 MILLIGRAM, ONCE DAILY (QD)
     Route: 048
     Dates: start: 2013
  8. BENSERAZIDE HYDROCHLORIDE;LEVODOPA [Concomitant]
     Indication: PRODUCT USED FOR UNKNOWN INDICATION
     Dosage: UNK
     Dates: start: 201309
  9. PROLOPA [Concomitant]
     Active Substance: BENSERAZIDE\LEVODOPA
     Indication: TREMOR
     Dosage: UNK, 5X/DAY
     Route: 062
     Dates: start: 2013
  10. RIVOTRIL [Concomitant]
     Active Substance: CLONAZEPAM
     Indication: DEPRESSION
  11. BIPERIDENO [Concomitant]
     Indication: PRODUCT USED FOR UNKNOWN INDICATION
     Dosage: UNK
     Dates: start: 2013

REACTIONS (11)
  - Application site pain [Recovered/Resolved]
  - Application site reaction [Not Recovered/Not Resolved]
  - Skin disorder [Not Recovered/Not Resolved]
  - Product adhesion issue [Unknown]
  - Product dose omission [Unknown]
  - Muscle spasms [Recovering/Resolving]
  - Sleep disorder [Not Recovered/Not Resolved]
  - Tremor [Recovering/Resolving]
  - Drug ineffective [Unknown]
  - Pain in extremity [Recovering/Resolving]
  - Sciatica [Not Recovered/Not Resolved]

NARRATIVE: CASE EVENT DATE: 201601
